FAERS Safety Report 8050183-X (Version None)
Quarter: 2012Q1

REPORT INFORMATION
  Report Type: 
  Country: None (occurrence: None)
  Receive Date: 20120117
  Receipt Date: 20120111
  Transmission Date: 20120608
  Serious: Yes (Other)
  Sender: FDA-Public Use
  Company Number: US-MERCK-1201USA01500

PATIENT
  Age: 77 Year
  Sex: Female

DRUGS (2)
  1. COZAAR [Suspect]
     Indication: HYPERTENSION
     Route: 048
  2. CRESTOR [Concomitant]
     Route: 065

REACTIONS (2)
  - PRURITUS GENERALISED [None]
  - RENAL CANCER [None]
